FAERS Safety Report 6073883-X (Version None)
Quarter: 2009Q1

REPORT INFORMATION
  Report Type: 
  Country: None (occurrence: None)
  Receive Date: 20090209
  Receipt Date: 20090209
  Transmission Date: 20090719
  Serious: Yes (Hospitalization)
  Sender: FDA-Public Use
  Company Number: None

PATIENT
  Age: 33 Year
  Sex: Male
  Weight: 86.1834 kg

DRUGS (1)
  1. CONDYLOX [Suspect]

REACTIONS (8)
  - ASTHENIA [None]
  - DRUG ADMINISTRATION ERROR [None]
  - DRUG TOXICITY [None]
  - DYSPNOEA [None]
  - FAECAL INCONTINENCE [None]
  - HEART RATE INCREASED [None]
  - MALAISE [None]
  - VOMITING [None]
